FAERS Safety Report 7475847-8 (Version None)
Quarter: 2011Q2

REPORT INFORMATION
  Report Type: 
  Country: None (occurrence: None)
  Receive Date: 20110512
  Receipt Date: 20110504
  Transmission Date: 20111010
  Serious: Yes (Death, Hospitalization, Other)
  Sender: FDA-Public Use
  Company Number: US-AMGEN-USASP2010000521

PATIENT
  Age: 74 Year
  Sex: Male

DRUGS (1)
  1. NPLATE [Suspect]
     Indication: IDIOPATHIC THROMBOCYTOPENIC PURPURA
     Dates: start: 20091111

REACTIONS (9)
  - ACCIDENT [None]
  - WOUND SEPSIS [None]
  - DEMENTIA [None]
  - HOSPITALISATION [None]
  - CHRONIC MYELOMONOCYTIC LEUKAEMIA [None]
  - CELLULITIS [None]
  - FALL [None]
  - WOUND INFECTION [None]
  - FRACTURE [None]
